FAERS Safety Report 7813199-1 (Version None)
Quarter: 2011Q4

REPORT INFORMATION
  Report Type: 
  Country: None (occurrence: None)
  Receive Date: 20111013
  Receipt Date: 20110930
  Transmission Date: 20120403
  Serious: Yes (Hospitalization)
  Sender: FDA-Public Use
  Company Number: US-BAYER-2011-081831

PATIENT
  Age: 32 Year
  Sex: Female
  Weight: 87.982 kg

DRUGS (4)
  1. YAZ [Suspect]
     Indication: PREMENSTRUAL SYNDROME
  2. PHENTERMINE [Concomitant]
     Dosage: 37.5 MG, UNK
     Route: 048
     Dates: start: 20080618
  3. YAZ [Suspect]
     Indication: ACNE
     Dosage: UNK
     Dates: start: 20080201
  4. YAZ [Suspect]

REACTIONS (8)
  - INJURY [None]
  - PAIN [None]
  - WEIGHT INCREASED [None]
  - DEPRESSION [None]
  - CHOLECYSTITIS [None]
  - HYPERTENSION [None]
  - DEFAECATION URGENCY [None]
  - CHOLECYSTITIS ACUTE [None]
